FAERS Safety Report 16086374 (Version 1)
Quarter: 2019Q1

REPORT INFORMATION
  Report Type: Spontaneous
  Country: FR (occurrence: FR)
  Receive Date: 20190318
  Receipt Date: 20190318
  Transmission Date: 20190418
  Serious: Yes (Hospitalization, Other)
  Sender: FDA-Public Use
  Company Number: FR-SEATTLE GENETICS-2016SGN00460

PATIENT
  Age: 40 Year
  Sex: Female
  Weight: 53 kg

DRUGS (6)
  1. VALACICLOVIR [Concomitant]
     Active Substance: VALACYCLOVIR HYDROCHLORIDE
     Indication: PROPHYLAXIS
     Dosage: 1 GRAM
     Route: 048
  2. BENDAMUSTINE [Concomitant]
     Active Substance: BENDAMUSTINE
     Indication: PRODUCT USED FOR UNKNOWN INDICATION
     Dosage: UNK
     Route: 065
     Dates: start: 20171211
  3. ADCETRIS [Suspect]
     Active Substance: BRENTUXIMAB VEDOTIN
     Dosage: 105 MG, UNK
     Route: 042
     Dates: start: 20180108
  4. BACTRIM [Concomitant]
     Active Substance: SULFAMETHOXAZOLE\TRIMETHOPRIM
     Indication: PROPHYLAXIS
     Dosage: 800 MILLIGRAM
     Route: 048
     Dates: start: 20150304
  5. ADCETRIS [Suspect]
     Active Substance: BRENTUXIMAB VEDOTIN
     Indication: HODGKIN^S DISEASE
     Dosage: 95 MG, UNK
     Route: 042
     Dates: start: 20150305
  6. ADCETRIS [Suspect]
     Active Substance: BRENTUXIMAB VEDOTIN
     Dosage: 105 MG, UNK
     Route: 042
     Dates: start: 20171211

REACTIONS (22)
  - Back pain [Recovered/Resolved]
  - Neuropathy peripheral [Recovered/Resolved]
  - Asthenia [Recovered/Resolved]
  - Leukocyturia [Recovered/Resolved]
  - Sinusitis [Recovered/Resolved]
  - Epistaxis [Unknown]
  - Cough [Recovered/Resolved]
  - Systemic inflammatory response syndrome [Recovering/Resolving]
  - Hyperhidrosis [Recovered/Resolved]
  - Hodgkin^s disease [Unknown]
  - Haematuria [Recovered/Resolved]
  - Pyrexia [Recovered/Resolved]
  - Pneumonia [Recovered/Resolved]
  - Leukocytosis [Unknown]
  - Lung infection [Recovered/Resolved]
  - Ear infection [Recovered/Resolved]
  - Lung disorder [Recovered/Resolved]
  - General physical health deterioration [Recovered/Resolved]
  - Muscle spasms [Recovered/Resolved]
  - Weight increased [Unknown]
  - Off label use [Unknown]
  - Bronchiolitis [Unknown]

NARRATIVE: CASE EVENT DATE: 2015
